FAERS Safety Report 6206977-6 (Version None)
Quarter: 2009Q2

REPORT INFORMATION
  Report Type: 
  Country: None (occurrence: None)
  Receive Date: 20090528
  Receipt Date: 20090522
  Transmission Date: 20091009
  Serious: Yes (Other)
  Sender: FDA-Public Use
  Company Number: B0575953A

PATIENT
  Age: 49 Year
  Sex: Female

DRUGS (3)
  1. REQUIP [Suspect]
     Route: 065
     Dates: start: 20090301
  2. XYREM [Suspect]
     Indication: FIBROMYALGIA
     Route: 048
     Dates: start: 20090216
  3. MONTELUKAST SODIUM [Concomitant]
     Route: 065

REACTIONS (5)
  - ABNORMAL DREAMS [None]
  - GAIT DISTURBANCE [None]
  - NIGHTMARE [None]
  - PHOTOPSIA [None]
  - VISUAL IMPAIRMENT [None]
